FAERS Safety Report 8066278-0 (Version None)
Quarter: 2012Q1

REPORT INFORMATION
  Report Type: 
  Country: None (occurrence: None)
  Receive Date: 20120124
  Receipt Date: 20120119
  Transmission Date: 20120608
  Serious: Yes (Hospitalization)
  Sender: FDA-Public Use
  Company Number: US-ROCHE-1032810

PATIENT
  Sex: Male

DRUGS (1)
  1. ZELBORAF [Suspect]
     Indication: PRODUCT USED FOR UNKNOWN INDICATION

REACTIONS (6)
  - URINARY TRACT INFECTION [None]
  - DIZZINESS [None]
  - ATRIAL FIBRILLATION [None]
  - RASH [None]
  - PYREXIA [None]
  - NAUSEA [None]
